FAERS Safety Report 7587263-9 (Version None)
Quarter: 2011Q3

REPORT INFORMATION
  Report Type: 
  Country: None (occurrence: None)
  Receive Date: 20110701
  Receipt Date: 20110617
  Transmission Date: 20111222
  Serious: Yes (Hospitalization)
  Sender: FDA-Public Use
  Company Number: BE-GENENTECH-312244

PATIENT
  Sex: Male
  Weight: 66 kg

DRUGS (18)
  1. CYCLOPHOSPHAMIDE [Suspect]
     Indication: DIFFUSE LARGE B-CELL LYMPHOMA
     Dosage: 1343 MG, UNK
     Route: 042
     Dates: start: 20101230
  2. CYCLOPHOSPHAMIDE [Suspect]
     Dosage: 1313 MG, UNK
     Route: 042
     Dates: start: 20110203
  3. CYCLOPHOSPHAMIDE [Suspect]
     Dosage: 1335 MG, UNK
     Route: 042
     Dates: start: 20110303
  4. RITUXIMAB [Suspect]
     Indication: DIFFUSE LARGE B-CELL LYMPHOMA
     Dosage: 672 MG, UNK
     Route: 042
     Dates: start: 20101230
  5. PREDNISONE [Suspect]
     Dosage: 100 MG, UNK
     Route: 048
     Dates: start: 20110303
  6. DOXORUBICIN HCL [Suspect]
     Indication: DIFFUSE LARGE B-CELL LYMPHOMA
     Dosage: 89.5 MG, UNK
     Route: 042
     Dates: start: 20101230
  7. DOXORUBICIN HCL [Suspect]
     Dosage: 87.5 MG, UNK
     Route: 042
     Dates: start: 20110203
  8. VINCRISTINE [Suspect]
     Indication: DIFFUSE LARGE B-CELL LYMPHOMA
     Dosage: 2 MG, UNK
     Route: 042
     Dates: start: 20101230
  9. NEUPOGEN [Suspect]
     Dosage: 6 MG, UNK
     Route: 058
     Dates: start: 20110303
  10. RITUXIMAB [Suspect]
     Dosage: 700 MG, UNK
     Route: 042
     Dates: start: 20110303
  11. PREDNISONE [Suspect]
     Indication: DIFFUSE LARGE B-CELL LYMPHOMA
     Dosage: 500 MG, UNK
     Route: 048
     Dates: start: 20101230
  12. NEUPOGEN [Suspect]
     Indication: DIFFUSE LARGE B-CELL LYMPHOMA
     Dosage: 6 MG, UNK
     Route: 058
     Dates: start: 20101231
  13. VINCRISTINE [Suspect]
     Dosage: 2 MG, UNK
     Route: 042
     Dates: start: 20110203
  14. NEUPOGEN [Suspect]
     Dosage: 6 MG, UNK
     Route: 058
     Dates: start: 20110207
  15. VINCRISTINE [Suspect]
     Dosage: 1 MG, UNK
     Route: 042
     Dates: start: 20110303
  16. RITUXIMAB [Suspect]
     Dosage: 700 MG, UNK
     Route: 042
     Dates: start: 20110203
  17. DOXORUBICIN HCL [Suspect]
     Dosage: 89 MG, UNK
     Route: 042
     Dates: start: 20110303
  18. PREDNISONE [Suspect]
     Dosage: 100 MG, UNK
     Route: 048
     Dates: start: 20110203

REACTIONS (4)
  - PNEUMONIA [None]
  - PULMONARY EMBOLISM [None]
  - EMPYEMA [None]
  - FEBRILE NEUTROPENIA [None]
